FAERS Safety Report 5694947-6 (Version None)
Quarter: 2008Q2

REPORT INFORMATION
  Report Type: 
  Country: None (occurrence: None)
  Receive Date: 20080404
  Receipt Date: 20080328
  Transmission Date: 20081010
  Serious: Yes (Hospitalization)
  Sender: FDA-Public Use
  Company Number: DE-BRISTOL-MYERS SQUIBB COMPANY-14120117

PATIENT
  Age: 72 Year

DRUGS (4)
  1. CETUXIMAB [Suspect]
     Indication: COLON CANCER
     Dosage: MOST RECENT INFUSION ON 21 FEB 2008
     Route: 042
     Dates: start: 20080221, end: 20080221
  2. OXALIPLATIN [Suspect]
     Indication: COLON CANCER
     Dosage: MOST RECENT INFUSION ON 14 FEB 2008
     Route: 042
     Dates: start: 20080214, end: 20080214
  3. FLUOROURACIL [Suspect]
     Indication: COLON CANCER
     Dosage: MOST RECENT INFUSION ON 15 FEB 2008
     Route: 042
     Dates: start: 20080215, end: 20080215
  4. FOLINIC ACID [Suspect]
     Indication: COLON CANCER
     Dosage: MOST RECENT INFUSION ON 15 FEB 2008
     Route: 042
     Dates: start: 20080215, end: 20080215

REACTIONS (1)
  - DEEP VEIN THROMBOSIS [None]
